FAERS Safety Report 13212613 (Version 1)
Quarter: 2017Q1

REPORT INFORMATION
  Report Type: Spontaneous
  Country: US (occurrence: US)
  Receive Date: 20170210
  Receipt Date: 20170210
  Transmission Date: 20170428
  Serious: No
  Sender: FDA-Public Use
  Company Number: US-ASTRAZENECA-2017SE12062

PATIENT
  Sex: Female
  Weight: 54.9 kg

DRUGS (3)
  1. IBRANCE [Suspect]
     Active Substance: PALBOCICLIB
     Indication: ENDOMETRIAL NEOPLASM
     Dosage: 125 MG, DAYS 1-21 Q28 DAYS
     Route: 048
     Dates: start: 201607
  2. NEXIUM [Suspect]
     Active Substance: ESOMEPRAZOLE MAGNESIUM
     Route: 048
  3. FASLODEX [Suspect]
     Active Substance: FULVESTRANT
     Indication: ENDOMETRIAL NEOPLASM
     Dosage: 500 MG, FREQUENCY UNKNOWN
     Route: 030
     Dates: start: 201509

REACTIONS (3)
  - Neuropathy peripheral [Unknown]
  - Fatigue [Unknown]
  - Alopecia [Unknown]
